FAERS Safety Report 9031213 (Version 2)
Quarter: 2013Q1

REPORT INFORMATION
  Report Type: Spontaneous
  Country: US (occurrence: US)
  Receive Date: 20130123
  Receipt Date: 20130129
  Transmission Date: 20140127
  Serious: No
  Sender: FDA-Public Use
  Company Number: US-B.I. PHARMACEUTICALS,INC./RIDGEFIELD-2013-BI-01682BP

PATIENT
  Age: 79 Year
  Sex: Female
  Weight: 46 kg

DRUGS (1)
  1. SPIRIVA [Suspect]
     Indication: MALAISE
     Dosage: 18 MCG
     Route: 055
     Dates: start: 20130116

REACTIONS (2)
  - Nasopharyngitis [Not Recovered/Not Resolved]
  - Product quality issue [Not Recovered/Not Resolved]
